FAERS Safety Report 22606309 (Version 2)
Quarter: 2023Q2

REPORT INFORMATION
  Report Type: Report from Study
  Country: GB (occurrence: GB)
  Receive Date: 20230615
  Receipt Date: 20230622
  Transmission Date: 20230721
  Serious: Yes (Death, Hospitalization)
  Sender: FDA-Public Use
  Company Number: GB-SAMSUNG BIOEPIS-SB-2023-15963

PATIENT
  Age: 86 Year
  Sex: Female

DRUGS (1)
  1. ETANERCEPT [Suspect]
     Active Substance: ETANERCEPT
     Indication: Rheumatoid arthritis
     Dosage: DOSE: UNKNOWN
     Route: 058
     Dates: start: 20171115

REACTIONS (4)
  - Pulmonary sepsis [Unknown]
  - Respiratory failure [Fatal]
  - Chronic obstructive pulmonary disease [Unknown]
  - Pneumonia [Fatal]

NARRATIVE: CASE EVENT DATE: 20181201
